FAERS Safety Report 25560818 (Version 2)
Quarter: 2025Q4

REPORT INFORMATION
  Report Type: Spontaneous
  Country: US (occurrence: US)
  Receive Date: 20250715
  Receipt Date: 20251121
  Transmission Date: 20260119
  Serious: No
  Sender: NOVO NORDISK
  Company Number: US-NOVOPROD-1384310

PATIENT
  Age: 86 Year
  Sex: Female

DRUGS (2)
  1. TRESIBA [Suspect]
     Active Substance: INSULIN DEGLUDEC
     Indication: Type 2 diabetes mellitus
     Dosage: 13 U, QD
     Route: 058
  2. OZEMPIC [Suspect]
     Active Substance: SEMAGLUTIDE
     Indication: Type 2 diabetes mellitus
     Dosage: UNK

REACTIONS (2)
  - Memory impairment [Not Recovered/Not Resolved]
  - Sleep deficit [Unknown]
